FAERS Safety Report 7764729-X (Version None)
Quarter: 2011Q3

REPORT INFORMATION
  Report Type: 
  Country: None (occurrence: None)
  Receive Date: 20110921
  Receipt Date: 20110915
  Transmission Date: 20111222
  Serious: Yes (Other)
  Sender: FDA-Public Use
  Company Number: US-UCBSA-041357

PATIENT
  Sex: Male
  Weight: 63.5 kg

DRUGS (8)
  1. FENTANYL-100 [Concomitant]
     Indication: PAIN
  2. ASPIRIN [Concomitant]
  3. BLOOD PRESSURE PILLS [Concomitant]
     Indication: HYPERTENSION
  4. CIMZIA [Suspect]
     Indication: RHEUMATOID ARTHRITIS
     Route: 058
     Dates: start: 20100101
  5. VITAMIN E [Concomitant]
  6. LORTAB [Concomitant]
     Indication: PAIN
  7. LIDOCAINE PATCHES [Concomitant]
     Indication: PAIN
  8. OMEGA [Concomitant]

REACTIONS (1)
  - PSORIASIS [None]
